FAERS Safety Report 11822831 (Version 1)
Quarter: 2015Q4

REPORT INFORMATION
  Report Type: Spontaneous
  Country: US (occurrence: US)
  Receive Date: 20151210
  Receipt Date: 20151210
  Transmission Date: 20160305
  Serious: No
  Sender: FDA-Public Use
  Company Number: US-JNJFOC-20150619020

PATIENT
  Sex: Female

DRUGS (9)
  1. PENTOXIFYLLINE. [Concomitant]
     Active Substance: PENTOXIFYLLINE
  2. IMBRUVICA [Suspect]
     Active Substance: IBRUTINIB
     Indication: CHRONIC LYMPHOCYTIC LEUKAEMIA
     Route: 048
     Dates: start: 20150306
  3. MOBIC [Concomitant]
     Active Substance: MELOXICAM
  4. PRILOSEC [Concomitant]
     Active Substance: OMEPRAZOLE MAGNESIUM
  5. BACLOFEN. [Concomitant]
     Active Substance: BACLOFEN
  6. CYCLOBENZAPRINE [Concomitant]
     Active Substance: CYCLOBENZAPRINE
  7. AMANTADINE [Concomitant]
     Active Substance: AMANTADINE
  8. DICLOFENAC [Concomitant]
     Active Substance: DICLOFENAC
  9. GABAPENTIN. [Concomitant]
     Active Substance: GABAPENTIN

REACTIONS (1)
  - Bladder discomfort [Not Recovered/Not Resolved]

NARRATIVE: CASE EVENT DATE: 2015
